FAERS Safety Report 4896123-3 (Version None)
Quarter: 2005Q4

REPORT INFORMATION
  Report Type: 
  Country: None (occurrence: None)
  Receive Date: 20051220
  Receipt Date: 20050824
  Transmission Date: 20060501
  Serious: Yes (Hospitalization)
  Sender: FDA-Public Use
  Company Number: US144633

PATIENT
  Age: 31 Year
  Sex: Female

DRUGS (4)
  1. ENBREL [Suspect]
     Indication: PSORIATIC ARTHROPATHY
     Dosage: 50 MG, 2 IN 1 WEEKS, SC
     Route: 058
     Dates: start: 20050501, end: 20050720
  2. EFALIZUMAB [Suspect]
     Dosage: 125 MG, 1 IN 1 WEEKS, SC
     Route: 058
     Dates: start: 20000101, end: 20050615
  3. PREDNISONE [Suspect]
     Dates: start: 20050101
  4. TRILEPTAL [Concomitant]

REACTIONS (3)
  - CONDITION AGGRAVATED [None]
  - DEMYELINATION [None]
  - PSORIASIS [None]
